FAERS Safety Report 4617729-2 (Version None)
Quarter: 2005Q1

REPORT INFORMATION
  Report Type: 
  Country: None (occurrence: None)
  Receive Date: 20050322
  Receipt Date: 20050222
  Transmission Date: 20050727
  Serious: No
  Sender: FDA-Public Use
  Company Number: 10495

PATIENT

DRUGS (9)
  1. METHOTREXATE [Suspect]
     Indication: DIFFUSE LARGE B-CELL LYMPHOMA
     Dosage: IT/IV
  2. DEXAMETHASONE [Concomitant]
  3. CYCLOPHOSPHAMIDE [Concomitant]
  4. CYTARABINE [Concomitant]
  5. PREDNISOLONE [Concomitant]
  6. VINCRISTINE [Concomitant]
  7. IFOSFAMIDE [Concomitant]
  8. ETOPOSIDE [Concomitant]
  9. DOXORUBICIN HCL [Concomitant]

REACTIONS (1)
  - MALIGNANT MELANOMA [None]
